FAERS Safety Report 5973601-7 (Version None)
Quarter: 2008Q4

REPORT INFORMATION
  Report Type: 
  Country: None (occurrence: None)
  Receive Date: 20081201
  Receipt Date: 20081117
  Transmission Date: 20090506
  Serious: Yes (Hospitalization)
  Sender: FDA-Public Use
  Company Number: BR-ELI_LILLY_AND_COMPANY-BR200811003710

PATIENT
  Sex: Female
  Weight: 50 kg

DRUGS (5)
  1. CYMBALTA [Suspect]
     Indication: FACIAL PAIN
     Dosage: 60 MG, DAILY (1/D)
     Route: 048
     Dates: start: 20080901
  2. SEROQUEL [Concomitant]
     Dosage: 100 MG, EACH EVENING
     Route: 048
  3. LAMOTRIGINE [Concomitant]
  4. CARBOLITIUM [Concomitant]
     Indication: BIPOLAR DISORDER
     Dosage: 900 MG, DAILY (1/D)
     Route: 048
  5. RIVOTRIL [Concomitant]
     Dosage: 2 MG, DAILY (1/D)

REACTIONS (2)
  - DRUG INEFFECTIVE [None]
  - FACIAL PAIN [None]
